FAERS Safety Report 6066600-0 (Version None)
Quarter: 2009Q1

REPORT INFORMATION
  Report Type: 
  Country: None (occurrence: None)
  Receive Date: 20090205
  Receipt Date: 20090126
  Transmission Date: 20090719
  Serious: Yes (Hospitalization)
  Sender: FDA-Public Use
  Company Number: B0556170A

PATIENT
  Age: 21 Year
  Sex: Female

DRUGS (1)
  1. AUGMENTIN '125' [Suspect]
     Indication: BRONCHITIS
     Dosage: 2G PER DAY
     Route: 048
     Dates: start: 20090112, end: 20090119

REACTIONS (5)
  - LARYNGEAL DISORDER [None]
  - OEDEMA [None]
  - PAIN [None]
  - PRURITUS [None]
  - SKIN LESION [None]
